FAERS Safety Report 6433387-9 (Version None)
Quarter: 2009Q4

REPORT INFORMATION
  Report Type: 
  Country: None (occurrence: None)
  Receive Date: 20091106
  Receipt Date: 20091106
  Transmission Date: 20100525
  Serious: Yes (Other)
  Sender: FDA-Public Use
  Company Number: None

PATIENT
  Age: 29 Year
  Sex: Male
  Weight: 72.7 kg

DRUGS (1)
  1. AMIDATE [Suspect]
     Indication: JOINT DISLOCATION
     Dosage: 10 MG ONCE IV BOLUS
     Route: 040
     Dates: start: 20091105, end: 20091105

REACTIONS (1)
  - CONVULSION [None]
